FAERS Safety Report 9915005 (Version 2)
Quarter: 2014Q1

REPORT INFORMATION
  Report Type: Report from Study
  Country: CA (occurrence: CA)
  Receive Date: 20140220
  Receipt Date: 20140312
  Transmission Date: 20141002
  Serious: Yes (Hospitalization)
  Sender: FDA-Public Use
  Company Number: PHHY2014CA020341

PATIENT
  Age: 61 Year
  Sex: Female

DRUGS (2)
  1. CLOZARIL [Suspect]
     Dosage: UNK UKN, UNK
     Dates: start: 20070410
  2. CLOZARIL [Suspect]
     Dosage: 300 MG, UNK

REACTIONS (2)
  - Influenza [Recovering/Resolving]
  - Malaise [Recovering/Resolving]
